FAERS Safety Report 7853794-7 (Version None)
Quarter: 2011Q4

REPORT INFORMATION
  Report Type: 
  Country: None (occurrence: None)
  Receive Date: 20111026
  Receipt Date: 20111019
  Transmission Date: 20120403
  Serious: Yes (Other)
  Sender: FDA-Public Use
  Company Number: CA-PFIZER INC-2011251914

PATIENT
  Sex: Female

DRUGS (2)
  1. VITALUX [Concomitant]
     Indication: MACULAR DEGENERATION
     Dosage: UNK
  2. XALATAN [Suspect]
     Indication: GLAUCOMA
     Dosage: 1 GTT, 1X/DAY IN EACH EYE
     Route: 047

REACTIONS (2)
  - CATARACT [None]
  - VISUAL ACUITY REDUCED [None]
